FAERS Safety Report 7235182-X (Version None)
Quarter: 2011Q1

REPORT INFORMATION
  Report Type: 
  Country: None (occurrence: None)
  Receive Date: 20110114
  Receipt Date: 20110114
  Transmission Date: 20110831
  Serious: Yes (Other)
  Sender: FDA-Public Use
  Company Number: None

PATIENT
  Age: 44 Year
  Sex: Male
  Weight: 65.7716 kg

DRUGS (1)
  1. CONCERTA [Suspect]
     Indication: ATTENTION DEFICIT/HYPERACTIVITY DISORDER
     Dosage: 10 MG ONE CAPSULE DAILY PO
     Route: 048
     Dates: start: 20101203, end: 20101220

REACTIONS (4)
  - RECTAL HAEMORRHAGE [None]
  - GASTRIC DISORDER [None]
  - ABDOMINAL PAIN [None]
  - GASTROINTESTINAL DISORDER [None]
